FAERS Safety Report 25524778 (Version 1)
Quarter: 2025Q3

REPORT INFORMATION
  Report Type: Spontaneous
  Country: US (occurrence: US)
  Receive Date: 20250707
  Receipt Date: 20250707
  Transmission Date: 20251020
  Serious: No
  Sender: CHATTEM
  Company Number: US-OPELLA-2025OHG020370

PATIENT

DRUGS (1)
  1. NICODERM CQ [Suspect]
     Active Substance: NICOTINE
     Indication: Product used for unknown indication

REACTIONS (5)
  - Product use issue [Unknown]
  - Liquid product physical issue [Unknown]
  - Product packaging difficult to open [Unknown]
  - Product packaging issue [Unknown]
  - No adverse event [Unknown]
